FAERS Safety Report 5654741-9 (Version None)
Quarter: 2008Q1

REPORT INFORMATION
  Report Type: 
  Country: None (occurrence: None)
  Receive Date: 20080307
  Receipt Date: 20080108
  Transmission Date: 20080703
  Serious: Yes (Hospitalization, Other)
  Sender: FDA-Public Use
  Company Number: US-ASTRAZENECA-2008UW04372

PATIENT
  Age: 46 Year
  Sex: Female

DRUGS (2)
  1. TOPROL [Suspect]
     Route: 048
  2. TOPAMAX [Suspect]
     Dates: start: 20070401

REACTIONS (6)
  - DYSURIA [None]
  - LOSS OF CONSCIOUSNESS [None]
  - MEDICATION ERROR [None]
  - PAIN [None]
  - RENAL FAILURE [None]
  - VOMITING [None]
